FAERS Safety Report 25212728 (Version 1)
Quarter: 2025Q2

REPORT INFORMATION
  Report Type: Spontaneous
  Country: US (occurrence: US)
  Receive Date: 20250418
  Receipt Date: 20250418
  Transmission Date: 20250717
  Serious: No
  Sender: IPSEN BIOPHARMACEUTICALS, INC.
  Company Number: US-IPSEN Group, Research and Development-2025-08908

PATIENT
  Sex: Female

DRUGS (3)
  1. SOMATULINE DEPOT [Suspect]
     Active Substance: LANREOTIDE ACETATE
     Indication: Narcolepsy
     Route: 065
     Dates: start: 202503
  2. SOMATULINE DEPOT [Suspect]
     Active Substance: LANREOTIDE ACETATE
     Indication: Off label use
  3. LUMRYZ [Suspect]
     Active Substance: SODIUM OXYBATE
     Indication: Product used for unknown indication
     Dosage: MIX 1 PACKET AS DIRECTED PER PACKAGE INSTRUCTIONS AND TAKE BY MOUTH ONCE EVERY NIGHT AT BEDTIME
     Route: 048

REACTIONS (2)
  - Vertigo [Unknown]
  - Off label use [Unknown]
